FAERS Safety Report 8178483-3 (Version None)
Quarter: 2012Q1

REPORT INFORMATION
  Report Type: 
  Country: None (occurrence: None)
  Receive Date: 20120301
  Receipt Date: 20120221
  Transmission Date: 20120608
  Serious: Yes (Hospitalization, Other)
  Sender: FDA-Public Use
  Company Number: JP-ASTRAZENECA-2012SE12982

PATIENT
  Age: 63 Year
  Sex: Male

DRUGS (7)
  1. AMLODIPINE [Concomitant]
     Route: 048
     Dates: end: 20120216
  2. METFORMIN HCL [Concomitant]
     Route: 048
     Dates: end: 20120216
  3. BLOSTAR M [Concomitant]
     Route: 048
     Dates: end: 20120216
  4. ASPIRIN [Concomitant]
     Route: 048
  5. METLIGINE [Concomitant]
     Route: 048
     Dates: end: 20120216
  6. PLETAL [Suspect]
     Indication: CEREBRAL INFARCTION
     Route: 048
     Dates: start: 20100601, end: 20120216
  7. CRESTOR [Suspect]
     Indication: HYPERCHOLESTEROLAEMIA
     Route: 048
     Dates: start: 20100601, end: 20120216

REACTIONS (2)
  - PNEUMONIA [None]
  - HEPATIC FUNCTION ABNORMAL [None]
